FAERS Safety Report 16809443 (Version 1)
Quarter: 2019Q4

REPORT INFORMATION
  Report Type: Spontaneous
  Country: US (occurrence: US)
  Receive Date: 20190915
  Receipt Date: 20190915
  Transmission Date: 20200122
  Serious: Yes (Life-Threatening, Hospitalization)
  Sender: FDA-Public Use
  Company Number: None

PATIENT
  Age: 27 Day
  Sex: Male
  Weight: 3.6 kg

DRUGS (2)
  1. RANITIDINE. [Suspect]
     Active Substance: RANITIDINE
     Indication: GASTROOESOPHAGEAL REFLUX DISEASE
     Route: 048
     Dates: start: 20160901, end: 20161028
  2. LORATIDINE [Concomitant]
     Active Substance: LORATADINE

REACTIONS (4)
  - Screaming [None]
  - Foaming at mouth [None]
  - Drooling [None]
  - Dyspnoea [None]

NARRATIVE: CASE EVENT DATE: 20160901
